FAERS Safety Report 17910929 (Version 1)
Quarter: 2020Q2

REPORT INFORMATION
  Report Type: Spontaneous
  Country: FR (occurrence: FR)
  Receive Date: 20200618
  Receipt Date: 20200618
  Transmission Date: 20200714
  Serious: Yes (Other)
  Sender: FDA-Public Use
  Company Number: NVSC2020FR168944

PATIENT
  Age: 7 Year
  Sex: Female

DRUGS (1)
  1. LAMOTRIGINE. [Suspect]
     Active Substance: LAMOTRIGINE
     Indication: TEMPORAL LOBE EPILEPSY
     Dosage: 40 MG, QD(20 MG, BID)
     Route: 065

REACTIONS (4)
  - Epilepsy [Unknown]
  - Dysphonia [Recovered/Resolved]
  - Product use in unapproved indication [Unknown]
  - Cognitive disorder [Unknown]
